FAERS Safety Report 9670969 (Version 2)
Quarter: 2013Q4

REPORT INFORMATION
  Report Type: Report from Study
  Country: DE (occurrence: DE)
  Receive Date: 20131106
  Receipt Date: 20131122
  Transmission Date: 20140711
  Serious: Yes (Other)
  Sender: FDA-Public Use
  Company Number: DE-ABBVIE-13P-062-1163822-00

PATIENT
  Sex: Female

DRUGS (3)
  1. HUMIRA [Suspect]
     Indication: PSORIASIS
     Route: 058
     Dates: start: 201001, end: 20130514
  2. HUMIRA [Suspect]
     Indication: PSORIATIC ARTHROPATHY
  3. GLUCOCORTICOIDS [Concomitant]
     Indication: PRODUCT USED FOR UNKNOWN INDICATION
     Dates: start: 20130514

REACTIONS (1)
  - Autoimmune hepatitis [Not Recovered/Not Resolved]
